FAERS Safety Report 5358494-3 (Version None)
Quarter: 2007Q2

REPORT INFORMATION
  Report Type: 
  Country: None (occurrence: None)
  Receive Date: 20070601
  Receipt Date: 20070207
  Transmission Date: 20071010
  Serious: No
  Sender: FDA-Public Use
  Company Number: US-1160451

PATIENT
  Sex: Female

DRUGS (1)
  1. NEVANAC [Suspect]
     Indication: EYE INFLAMMATION
     Dosage: (THREE TIMES A DAY OPHTHALMIC)
     Route: 047
     Dates: start: 20061218

REACTIONS (1)
  - DRUG INEFFECTIVE [None]
